FAERS Safety Report 24561419 (Version 2)
Quarter: 2024Q4

REPORT INFORMATION
  Report Type: Report from Study
  Country: CO (occurrence: CO)
  Receive Date: 20241029
  Receipt Date: 20241213
  Transmission Date: 20250115
  Serious: Yes (Hospitalization, Other)
  Sender: BAYER HEALTHCARE PHARMACEUTICALS INC.
  Company Number: CO-BAYER-2024A128848

PATIENT
  Age: 86 Year
  Sex: Male

DRUGS (2)
  1. ADEMPAS [Suspect]
     Active Substance: RIOCIGUAT
     Indication: Pulmonary arterial hypertension
     Dosage: 1.5 MG, Q8HR
     Route: 048
     Dates: start: 20240401
  2. ADEMPAS [Suspect]
     Active Substance: RIOCIGUAT
     Indication: Pulmonary arterial hypertension
     Dosage: 1.5 MG
     Route: 048

REACTIONS (15)
  - Pneumonia [Not Recovered/Not Resolved]
  - Dyspnoea [Recovered/Resolved]
  - Thrombosis [None]
  - Bladder catheterisation [None]
  - Gastroenteritis [Recovered/Resolved]
  - Peripheral swelling [Recovered/Resolved]
  - Peripheral swelling [Recovered/Resolved]
  - Oxygen saturation decreased [None]
  - Hypersensitivity [Not Recovered/Not Resolved]
  - Scratch [None]
  - Erythema [None]
  - Skin warm [None]
  - Gastroenteritis [Unknown]
  - Hand dermatitis [None]
  - Hypersensitivity [None]

NARRATIVE: CASE EVENT DATE: 20240801
